FAERS Safety Report 6067894-8 (Version None)
Quarter: 2009Q1

REPORT INFORMATION
  Report Type: 
  Country: None (occurrence: None)
  Receive Date: 20090203
  Receipt Date: 20090122
  Transmission Date: 20090719
  Serious: Yes (Other)
  Sender: FDA-Public Use
  Company Number: 230027K09BRA

PATIENT
  Age: 35 Year
  Sex: Female

DRUGS (3)
  1. REBIF [Suspect]
     Indication: DRUG USE FOR UNKNOWN INDICATION
     Dosage: 22 MCG, 3 IN 1 WEEKS; 44 MCG, 3 IN 1 WEEKS
     Dates: start: 20081101, end: 20080101
  2. REBIF [Suspect]
     Indication: DRUG USE FOR UNKNOWN INDICATION
     Dosage: 22 MCG, 3 IN 1 WEEKS; 44 MCG, 3 IN 1 WEEKS
     Dates: start: 20041201, end: 20081101
  3. REBIF [Suspect]
     Indication: DRUG USE FOR UNKNOWN INDICATION
     Dosage: 22 MCG, 3 IN 1 WEEKS; 44 MCG, 3 IN 1 WEEKS
     Dates: start: 20090101

REACTIONS (6)
  - BACK PAIN [None]
  - HEADACHE [None]
  - PAIN IN EXTREMITY [None]
  - PARAPLEGIA [None]
  - PARESIS [None]
  - TREATMENT NONCOMPLIANCE [None]
